FAERS Safety Report 8471457-4 (Version None)
Quarter: 2012Q2

REPORT INFORMATION
  Report Type: 
  Country: None (occurrence: None)
  Receive Date: 20120627
  Receipt Date: 20120622
  Transmission Date: 20120825
  Serious: Yes (Other)
  Sender: FDA-Public Use
  Company Number: PHHY2011DE103062

PATIENT
  Sex: Female

DRUGS (1)
  1. IMATINIB MESYLATE [Suspect]
     Indication: CHRONIC MYELOID LEUKAEMIA
     Dosage: 400 MG, DAILY
     Route: 048
     Dates: start: 20111020, end: 20120120

REACTIONS (6)
  - APRAXIA [None]
  - CHILLS [None]
  - DYSGRAPHIA [None]
  - INFECTION [None]
  - APHASIA [None]
  - PYREXIA [None]
